FAERS Safety Report 7051800-3 (Version None)
Quarter: 2010Q4

REPORT INFORMATION
  Report Type: 
  Country: None (occurrence: None)
  Receive Date: 20101019
  Receipt Date: 20101011
  Transmission Date: 20110411
  Serious: Yes (Death)
  Sender: FDA-Public Use
  Company Number: DE-JNJFOC-20100804782

PATIENT
  Age: 27 Year
  Sex: Female

DRUGS (3)
  1. DURAGESIC-100 [Suspect]
     Indication: PAIN
     Route: 062
  2. NALOXONE [Interacting]
     Indication: DRUG LEVEL
     Route: 065
  3. VENLAFAXINE [Suspect]
     Indication: PRODUCT USED FOR UNKNOWN INDICATION
     Route: 065

REACTIONS (5)
  - DRUG ABUSE [None]
  - DRUG INTERACTION [None]
  - DRUG INTOLERANCE [None]
  - DRUG TOXICITY [None]
  - THERAPEUTIC RESPONSE INCREASED [None]
